FAERS Safety Report 4538505-5 (Version None)
Quarter: 2004Q4

REPORT INFORMATION
  Report Type: 
  Country: None (occurrence: None)
  Receive Date: 20041227
  Receipt Date: 20041207
  Transmission Date: 20050328
  Serious: Yes (Life-Threatening, Hospitalization)
  Sender: FDA-Public Use
  Company Number: US-BOEHRINGER INGELHEIM PHARMMACEUTICALS, INC.-2004-BP-13313BP

PATIENT
  Sex: Female

DRUGS (4)
  1. SPIRIVA [Suspect]
     Route: 055
     Dates: start: 20040701, end: 20040901
  2. SPIRIVA [Suspect]
     Route: 055
     Dates: start: 20041001
  3. ADVAIR DISKUS 100/50 [Concomitant]
     Route: 055
     Dates: start: 20040701
  4. ALBUTEROL [Concomitant]
     Route: 055
     Dates: start: 20040701

REACTIONS (1)
  - PULMONARY OEDEMA [None]
